FAERS Safety Report 5916002-X (Version None)
Quarter: 2008Q4

REPORT INFORMATION
  Report Type: 
  Country: None (occurrence: None)
  Receive Date: 20081013
  Receipt Date: 20081001
  Transmission Date: 20090506
  Serious: Yes (Other)
  Sender: FDA-Public Use
  Company Number: US-JNJFOC-20081002363

PATIENT
  Sex: Female
  Weight: 93.9 kg

DRUGS (3)
  1. DURAGESIC-100 [Suspect]
     Indication: INTERVERTEBRAL DISC PROTRUSION
     Route: 062
  2. COLACE [Concomitant]
     Indication: CONSTIPATION
     Dosage: AS NEEDED
     Route: 048
  3. SENNA [Concomitant]
     Indication: CONSTIPATION
     Route: 048

REACTIONS (9)
  - COLD SWEAT [None]
  - DRUG EFFECT DECREASED [None]
  - DRUG INEFFECTIVE [None]
  - HEADACHE [None]
  - INCORRECT DRUG ADMINISTRATION DURATION [None]
  - IRRITABILITY [None]
  - MIGRAINE [None]
  - WEIGHT DECREASED [None]
  - WITHDRAWAL SYNDROME [None]
